FAERS Safety Report 11419488 (Version 1)
Quarter: 2015Q3

REPORT INFORMATION
  Report Type: Spontaneous
  Country: US (occurrence: US)
  Receive Date: 20150826
  Receipt Date: 20150826
  Transmission Date: 20151125
  Serious: No
  Sender: FDA-Public Use
  Company Number: US-B.I. PHARMACEUTICALS,INC./RIDGEFIELD-2015-BI-44473BP

PATIENT
  Age: 29 Year
  Sex: Female
  Weight: 60 kg

DRUGS (2)
  1. ALBUTEROL. [Concomitant]
     Active Substance: ALBUTEROL
     Indication: PRODUCT USED FOR UNKNOWN INDICATION
     Route: 055
  2. ATROVENT [Suspect]
     Active Substance: IPRATROPIUM BROMIDE
     Indication: ANTIVIRAL TREATMENT
     Dosage: 136 MCG
     Route: 055
     Dates: start: 20150812, end: 20150813

REACTIONS (5)
  - Cough [Not Recovered/Not Resolved]
  - Migraine [Recovered/Resolved]
  - Off label use [Unknown]
  - Insomnia [Recovered/Resolved]
  - Chest pain [Not Recovered/Not Resolved]

NARRATIVE: CASE EVENT DATE: 20150812
